FAERS Safety Report 11106982 (Version 1)
Quarter: 2015Q2

REPORT INFORMATION
  Report Type: Spontaneous
  Country: US (occurrence: US)
  Receive Date: 20150512
  Receipt Date: 20150512
  Transmission Date: 20150821
  Serious: No
  Sender: FDA-Public Use
  Company Number: US-BAUSCH-BL-2014-003438

PATIENT
  Sex: Male
  Weight: 88.53 kg

DRUGS (2)
  1. LATANOPROST OPHTHALMIC SOLUTION 0.005% [Suspect]
     Active Substance: LATANOPROST
     Indication: GLAUCOMA
     Dosage: 1 DROP IN BOTH EYES AT BEDTIME
     Route: 047
     Dates: start: 2014
  2. BRIMONIDINE TARTRATE OPHTHALMIC SOLUTION 0.2% [Interacting]
     Active Substance: BRIMONIDINE TARTRATE
     Indication: GLAUCOMA
     Dosage: 1 DROP, RIGHT EYE, TWICE DAILY
     Route: 047
     Dates: start: 2014

REACTIONS (4)
  - Incorrect dosage administered [Unknown]
  - Lacrimation increased [Unknown]
  - Eye pruritus [Unknown]
  - Eye irritation [Unknown]

NARRATIVE: CASE EVENT DATE: 2014
